FAERS Safety Report 20686526 (Version 4)
Quarter: 2022Q4

REPORT INFORMATION
  Report Type: Spontaneous
  Country: US (occurrence: US)
  Receive Date: 20220407
  Receipt Date: 20221013
  Transmission Date: 20230112
  Serious: No
  Sender: FDA-Public Use
  Company Number: US-BRISTOL-MYERS SQUIBB COMPANY-2022-014724

PATIENT
  Age: 60 Year
  Sex: Female

DRUGS (2)
  1. ORENCIA [Suspect]
     Active Substance: ABATACEPT
     Indication: Rheumatoid arthritis
     Dosage: BATCH: BCUL14A, EXPIRY DATE: 30-NOV-2023
     Route: 058
     Dates: start: 20220222
  2. ORENCIA [Suspect]
     Active Substance: ABATACEPT
     Indication: Chronic kidney disease
     Route: 058
     Dates: start: 202202

REACTIONS (3)
  - Pain [Recovering/Resolving]
  - Joint swelling [Not Recovered/Not Resolved]
  - Arthralgia [Not Recovered/Not Resolved]
